FAERS Safety Report 8643331 (Version 5)
Quarter: 2012Q4

REPORT INFORMATION
  Report Type: 
  Country: IE (occurrence: IE)
  Receive Date: 20120629
  Receipt Date: 20121111
  Transmission Date: 20130627
  Serious: Yes (Hospitalization, Other)
  Sender: FDA-Public Use
  Company Number: PHFR2012IE003742

PATIENT
  Age: 77 Year
  Sex: Female

DRUGS (9)
  1. CLOZARIL [Suspect]
     Indication: SCHIZOPHRENIA
     Dosage: UNK UKN, UNK
     Route: 048
     Dates: start: 20120501
  2. CLOZARIL [Suspect]
     Dosage: 25 mg, daily
     Route: 048
     Dates: start: 20120502, end: 20120531
  3. AMLODIPINE [Concomitant]
     Indication: HYPERTENSION
     Dosage: 10 mg, daily
     Route: 048
  4. FOLATE SODIUM [Concomitant]
     Dosage: 5 mg, daily
     Route: 048
  5. ASPIRIN [Concomitant]
     Indication: CARDIAC DISORDER
     Dosage: 75 mg, UNK
     Route: 048
     Dates: start: 20120511
  6. ROSUVASTATIN [Concomitant]
     Indication: HYPERCHOLESTEROLAEMIA
     Dosage: 10 mg, daily
     Dates: start: 20120511
  7. HALOPERIDOL [Concomitant]
     Indication: PSYCHOTIC DISORDER
     Dosage: 1 mg nocte
     Route: 048
     Dates: start: 20120503, end: 20120508
  8. HALOPERIDOL [Concomitant]
     Dosage: 0.5 mg, nocte
     Route: 048
     Dates: start: 20120508, end: 20120510
  9. HALOPERIDOL [Concomitant]
     Dosage: 0.5 mg, mane
     Route: 048
     Dates: start: 20120503, end: 20120516

REACTIONS (11)
  - Disorientation [Recovered/Resolved]
  - Infection [Unknown]
  - Poor dental condition [Unknown]
  - Somnolence [Recovered/Resolved]
  - Lower respiratory tract infection [Recovered/Resolved]
  - Alanine aminotransferase increased [Recovered/Resolved]
  - Blood alkaline phosphatase increased [Recovered/Resolved]
  - Gamma-glutamyltransferase increased [Recovered/Resolved]
  - Pyrexia [Recovered/Resolved]
  - Confusional state [Recovered/Resolved]
  - Haemoglobin decreased [Unknown]
